FAERS Safety Report 8925769 (Version 3)
Quarter: 2012Q4

REPORT INFORMATION
  Report Type: 
  Country: DE (occurrence: DE)
  Receive Date: 20121126
  Receipt Date: 20121213
  Transmission Date: 20130627
  Serious: Yes (Hospitalization)
  Sender: FDA-Public Use
  Company Number: DE-OTSUKA-EU-2012-10291

PATIENT
  Age: 76 None
  Sex: Female

DRUGS (17)
  1. SAMSCA [Suspect]
     Indication: INAPPROPRIATE ANTIDIURETIC HORMONE SECRETION
     Dosage: 7.5 Mg milligram(s), daily dose
     Route: 048
     Dates: start: 20120810, end: 20121102
  2. SAMSCA [Suspect]
     Dosage: 15 Mg milligram(s), unknown
  3. PSYCHOTROPIC DRUGS [Concomitant]
     Dosage: UNK, unknown
  4. BISOPROLOL [Concomitant]
     Indication: HYPERTENSION
     Dosage: 5 Mg milligram(s), unknown
     Route: 048
  5. LORAZEPAM [Concomitant]
     Indication: FEAR
     Dosage: 0.25 Unknown, unknown
     Route: 048
  6. LORAZEPAM [Concomitant]
     Indication: DEPRESSION
  7. TROSPIUM CHLORIDE [Concomitant]
     Dosage: UNK UNK, bid
  8. LATANOPROST [Concomitant]
     Dosage: UNK, bid
     Route: 065
  9. FLUDROCORTISONE [Concomitant]
     Dosage: UNK, qd
     Route: 065
  10. POTASSIUM [Concomitant]
     Dosage: UNK, unknown
     Route: 065
  11. ALPRAZOLAM [Concomitant]
     Dosage: UNK, unknown
     Route: 065
  12. VALDOXAN [Concomitant]
     Dosage: UNK, unknown
     Route: 065
     Dates: start: 201205
  13. DOXEPIN [Concomitant]
     Dosage: UNK, unknown
     Route: 065
  14. SULPIRIDE [Concomitant]
     Dosage: UNK, unknown
     Route: 065
  15. NOVAMINSULFON [Concomitant]
     Dosage: UNK, unknown
     Route: 065
  16. LAMOTRIGIN [Concomitant]
     Dosage: 25 Mg milligram(s), qd
     Route: 065
  17. MACROGOL [Concomitant]
     Dosage: UNK UNK, bid
     Route: 065

REACTIONS (12)
  - General physical health deterioration [Unknown]
  - Hepatic enzyme abnormal [Recovered/Resolved]
  - Vertigo [Unknown]
  - Alopecia [Unknown]
  - Haematoma [Unknown]
  - Pruritus [Unknown]
  - Asthenia [Unknown]
  - Decreased appetite [Unknown]
  - Wrong technique in drug usage process [None]
  - Incorrect drug administration rate [None]
  - Blood alkaline phosphatase increased [None]
  - Blood lactate dehydrogenase increased [None]
